FAERS Safety Report 4900267-7 (Version None)
Quarter: 2006Q1

REPORT INFORMATION
  Report Type: 
  Country: None (occurrence: None)
  Receive Date: 20060203
  Receipt Date: 20060123
  Transmission Date: 20060701
  Serious: Yes (Other)
  Sender: FDA-Public Use
  Company Number: AU-ROCHE-433265

PATIENT
  Age: 67 Year
  Sex: Female

DRUGS (1)
  1. CEFTRIAXONE SODIUM [Suspect]
     Route: 042
     Dates: start: 20041215, end: 20041221

REACTIONS (3)
  - FLUSHING [None]
  - PETECHIAE [None]
  - TACHYCARDIA [None]
